FAERS Safety Report 6470241-0 (Version None)
Quarter: 2009Q4

REPORT INFORMATION
  Report Type: 
  Country: None (occurrence: None)
  Receive Date: 20091203
  Receipt Date: 20071227
  Transmission Date: 20100525
  Serious: Yes (Life-Threatening)
  Sender: FDA-Public Use
  Company Number: JP-ELI_LILLY_AND_COMPANY-JP200712000756

PATIENT
  Sex: Female

DRUGS (10)
  1. RALOXIFENE HYDROCHLORIDE [Suspect]
     Indication: OSTEOPOROSIS POSTMENOPAUSAL
     Dosage: 60 MG, DAILY (1/D)
     Route: 048
     Dates: start: 20041228, end: 20050601
  2. NEOLAMIN 3B [Concomitant]
     Indication: NEUROPATHY PERIPHERAL
     Dosage: 2 D/F, WEEKLY (1/W)
     Route: 042
     Dates: start: 20041221, end: 20050624
  3. ELCITONIN [Concomitant]
     Indication: OSTEOPOROSIS POSTMENOPAUSAL
     Dosage: 1 D/F, WEEKLY (1/W)
     Route: 030
     Dates: start: 20041228, end: 20050624
  4. MOHRUS [Concomitant]
     Indication: PAIN
     Dosage: 3 D/F, DAILY (1/D)
     Route: 062
     Dates: start: 20050228, end: 20050624
  5. ALFAROL [Concomitant]
     Indication: OSTEOPOROSIS POSTMENOPAUSAL
     Dosage: 1 UG, DAILY (1/D)
     Route: 048
     Dates: start: 20050531, end: 20050624
  6. MENESIT [Concomitant]
     Indication: PARKINSON'S DISEASE
     Dosage: 500 MG, DAILY (1/D)
     Route: 048
  7. SYMMETREL [Concomitant]
     Indication: PARKINSON'S DISEASE
     Dosage: 200 MG, DAILY (1/D)
  8. PERMAX [Concomitant]
  9. DOPS [Concomitant]
  10. NAUZELIN [Concomitant]

REACTIONS (3)
  - ALTERED STATE OF CONSCIOUSNESS [None]
  - CARDIAC FAILURE [None]
  - PULMONARY OEDEMA [None]
